FAERS Safety Report 10414080 (Version 2)
Quarter: 2014Q3

REPORT INFORMATION
  Report Type: Spontaneous
  Country: US (occurrence: US)
  Receive Date: 20140827
  Receipt Date: 20140827
  Transmission Date: 20150326
  Serious: No
  Sender: FDA-Public Use
  Company Number: US-ASTRAZENECA-2013SE75940

PATIENT
  Age: 31898 Day
  Sex: Female
  Weight: 50.8 kg

DRUGS (3)
  1. SYMBICORT [Suspect]
     Active Substance: BUDESONIDE\FORMOTEROL FUMARATE DIHYDRATE
     Indication: CHRONIC OBSTRUCTIVE PULMONARY DISEASE
     Dosage: 2 PUFFS BID
     Route: 055
     Dates: start: 20130921, end: 201310
  2. HEART MEDICATION [Concomitant]
     Active Substance: UNSPECIFIED INGREDIENT
  3. COPD MEDICATIONS [Suspect]
     Active Substance: UNSPECIFIED INGREDIENT
     Indication: CHRONIC OBSTRUCTIVE PULMONARY DISEASE
     Route: 065

REACTIONS (12)
  - Tremor [Unknown]
  - Thyroid disorder [Unknown]
  - Glaucoma [Unknown]
  - Asthma [Unknown]
  - Chest discomfort [Unknown]
  - Emphysema [Unknown]
  - Hypoacusis [Not Recovered/Not Resolved]
  - Chronic obstructive pulmonary disease [Unknown]
  - Bronchitis [Unknown]
  - Cardiac disorder [Unknown]
  - Therapy cessation [Unknown]
  - Nervousness [Unknown]

NARRATIVE: CASE EVENT DATE: 20130921
